FAERS Safety Report 19867470 (Version 1)
Quarter: 2021Q3

REPORT INFORMATION
  Report Type: Spontaneous
  Country: AT (occurrence: AT)
  Receive Date: 20210921
  Receipt Date: 20210921
  Transmission Date: 20211014
  Serious: Yes (Other)
  Sender: FDA-Public Use
  Company Number: AT-PFIZER INC-202101180051

PATIENT
  Age: 58 Year
  Sex: Female

DRUGS (3)
  1. PRAXITEN [Suspect]
     Active Substance: OXAZEPAM
     Dosage: UNK
  2. VENLAFAXINE HCL [Suspect]
     Active Substance: VENLAFAXINE HYDROCHLORIDE
     Dosage: UNK
  3. PRAXITEN [Suspect]
     Active Substance: OXAZEPAM
     Dosage: UNK

REACTIONS (7)
  - Alcoholism [Not Recovered/Not Resolved]
  - Disease recurrence [Not Recovered/Not Resolved]
  - Fibula fracture [Not Recovered/Not Resolved]
  - Face injury [Not Recovered/Not Resolved]
  - Incorrect dose administered [Unknown]
  - Hand fracture [Not Recovered/Not Resolved]
  - Fall [Not Recovered/Not Resolved]
